FAERS Safety Report 5127351-X (Version None)
Quarter: 2006Q4

REPORT INFORMATION
  Report Type: 
  Country: None (occurrence: None)
  Receive Date: 20061010
  Receipt Date: 20060922
  Transmission Date: 20070319
  Serious: Yes (Disabling)
  Sender: FDA-Public Use
  Company Number: S06-FRA-04110-01

PATIENT
  Age: 77 Year
  Sex: Male

DRUGS (2)
  1. MEMANTINE HCL [Suspect]
     Indication: DEMENTIA ALZHEIMER'S TYPE
     Dosage: 20 MG QD PO
     Route: 048
     Dates: start: 20060601
  2. EXELON [Concomitant]

REACTIONS (3)
  - PROSTATIC ADENOMA [None]
  - URINARY INCONTINENCE [None]
  - URINARY TRACT INFECTION [None]
